FAERS Safety Report 20654946 (Version 3)
Quarter: 2022Q3

REPORT INFORMATION
  Report Type: Report from Study
  Country: US (occurrence: US)
  Receive Date: 20220330
  Receipt Date: 20220822
  Transmission Date: 20221027
  Serious: Yes (Other)
  Sender: FDA-Public Use
  Company Number: US-BRISTOL-MYERS SQUIBB COMPANY-2022-011564

PATIENT
  Age: 63 Year
  Sex: Male
  Weight: 74.89 kg

DRUGS (18)
  1. REVLIMID [Suspect]
     Active Substance: LENALIDOMIDE
     Indication: Plasma cell myeloma
     Dosage: DAILY 28 DAYS
     Route: 048
     Dates: start: 20200108
  2. TYLENOL [Concomitant]
     Active Substance: ACETAMINOPHEN
  3. LEVOTHYROXINE [Concomitant]
     Active Substance: LEVOTHYROXINE
  4. ACYCLOVIR [Concomitant]
     Active Substance: ACYCLOVIR
  5. DIPHENHYDRAMINE HYDROCHLORIDE [Concomitant]
     Active Substance: DIPHENHYDRAMINE HYDROCHLORIDE
  6. CYANOCOBALAMIN [Concomitant]
     Active Substance: CYANOCOBALAMIN
  7. FINASTERIDE [Concomitant]
     Active Substance: FINASTERIDE
  8. DEXAMETHASONE [Concomitant]
     Active Substance: DEXAMETHASONE
  9. VITAMIN D3 [Concomitant]
     Active Substance: CHOLECALCIFEROL
  10. DARZALEX [Concomitant]
     Active Substance: DARATUMUMAB
  11. PANTOPRAZOLE [Concomitant]
     Active Substance: PANTOPRAZOLE
  12. MYRBETRIQ [Concomitant]
     Active Substance: MIRABEGRON
     Indication: Product used for unknown indication
     Route: 065
  13. ASPIRIN [Concomitant]
     Active Substance: ASPIRIN
  14. CORTISONE [Concomitant]
     Active Substance: CORTISONE
  15. CALCITRIOL [Concomitant]
     Active Substance: CALCITRIOL
  16. TUMS [Concomitant]
     Active Substance: CALCIUM CARBONATE
  17. TAMSULOSIN [Concomitant]
     Active Substance: TAMSULOSIN
  18. HYDROCODONE [Concomitant]
     Active Substance: HYDROCODONE

REACTIONS (4)
  - Clostridium difficile infection [Unknown]
  - Oropharyngeal discomfort [Recovering/Resolving]
  - Fatigue [Unknown]
  - Off label use [Unknown]
